FAERS Safety Report 16740548 (Version 3)
Quarter: 2019Q3

REPORT INFORMATION
  Report Type: Spontaneous
  Country: US (occurrence: US)
  Receive Date: 20190826
  Receipt Date: 20190923
  Transmission Date: 20191005
  Serious: No
  Sender: FDA-Public Use
  Company Number: US-PFIZER INC-2019363734

PATIENT
  Age: 39 Year
  Sex: Female

DRUGS (1)
  1. LYRICA [Suspect]
     Active Substance: PREGABALIN
     Indication: PAIN
     Dosage: 150 MG IN AM AND 75 MG AT NOON, ANOTHER 75 MG AFTERNOON THEN 225 MG EVENING FOR PAIN

REACTIONS (1)
  - Therapeutic product effect incomplete [Unknown]
